FAERS Safety Report 9834066 (Version 1)
Quarter: 2014Q1

REPORT INFORMATION
  Report Type: Spontaneous
  Country: US (occurrence: US)
  Receive Date: 20140122
  Receipt Date: 20140122
  Transmission Date: 20141002
  Serious: Yes (Other)
  Sender: FDA-Public Use
  Company Number: US-JNJFOC-20140110022

PATIENT
  Sex: 0

DRUGS (5)
  1. STELARA [Suspect]
     Indication: PSORIASIS
     Route: 058
  2. PREVACID [Concomitant]
     Route: 065
  3. FLEXERIL [Concomitant]
     Route: 065
  4. SYMBICORT [Concomitant]
     Route: 065
  5. LIDODERM [Concomitant]
     Route: 065

REACTIONS (2)
  - Neuropathy peripheral [Unknown]
  - Adverse drug reaction [Unknown]
